FAERS Safety Report 5728465-3 (Version None)
Quarter: 2008Q2

REPORT INFORMATION
  Report Type: 
  Country: None (occurrence: None)
  Receive Date: 20080430
  Receipt Date: 20071231
  Transmission Date: 20081010
  Serious: No
  Sender: FDA-Public Use
  Company Number: 2008PV033897

PATIENT
  Age: 64 Year
  Sex: Male
  Weight: 156.491 kg

DRUGS (6)
  1. SYMLIN [Suspect]
     Indication: TYPE 2 DIABETES MELLITUS
     Dosage: 120 MCG;TID;SC, 60 MCG;TID;SC, 120 MCG;QD
     Route: 058
     Dates: start: 20070101, end: 20070101
  2. SYMLIN [Suspect]
     Indication: TYPE 2 DIABETES MELLITUS
     Dosage: 120 MCG;TID;SC, 60 MCG;TID;SC, 120 MCG;QD
     Route: 058
     Dates: start: 20071101, end: 20071101
  3. SYMLIN [Suspect]
     Indication: TYPE 2 DIABETES MELLITUS
     Dosage: 120 MCG;TID;SC, 60 MCG;TID;SC, 120 MCG;QD
     Route: 058
     Dates: start: 20071101
  4. NOVOLOG [Concomitant]
  5. LANTUS [Concomitant]
  6. EXUBERA [Concomitant]

REACTIONS (9)
  - BLOOD GLUCOSE DECREASED [None]
  - DISORIENTATION [None]
  - DISTURBANCE IN ATTENTION [None]
  - DIZZINESS [None]
  - FEELING COLD [None]
  - GAIT DISTURBANCE [None]
  - HYPERHIDROSIS [None]
  - INJECTION SITE PAIN [None]
  - VISUAL DISTURBANCE [None]
